FAERS Safety Report 23323309 (Version 1)
Quarter: 2023Q4

REPORT INFORMATION
  Report Type: Other
  Country: US (occurrence: None)
  Receive Date: 20231220
  Receipt Date: 20231220
  Transmission Date: 20240109
  Serious: No
  Sender: FDA-Public Use
  Company Number: US-MLMSERVICE-20230301-4138935-1

PATIENT
  Age: 54 Year
  Sex: Female

DRUGS (13)
  1. RITUXIMAB [Suspect]
     Active Substance: RITUXIMAB
     Indication: Lymphoma
     Route: 041
  2. CEFTRIAXONE [Suspect]
     Active Substance: CEFTRIAXONE\CEFTRIAXONE SODIUM
     Indication: Bacterial infection
     Dosage: 3-DAY COURSE
     Route: 042
  3. LEUCOVORIN [Concomitant]
     Active Substance: LEUCOVORIN\LEUCOVORIN CALCIUM
     Indication: Toxicity to various agents
  4. DEXTROSE [Concomitant]
     Active Substance: DEXTROSE\DEXTROSE MONOHYDRATE
     Indication: Urine alkalinisation therapy
     Dosage: SODIUM BICARBONATE IN 5% DEXTROSE IN WATER /BICARBONATE-CONTAINING INTRAVENOUS FLUIDS TOTALING 2.5-5
  5. DEXTROSE [Concomitant]
     Active Substance: DEXTROSE\DEXTROSE MONOHYDRATE
     Dosage: SODIUM BICARBONATE IN 5% DEXTROSE IN WATER /BICARBONATE-CONTAINING INTRAVENOUS FLUIDS TOTALING 2.5-5
  6. LEVETIRACETAM [Concomitant]
     Active Substance: LEVETIRACETAM
  7. APIXABAN [Concomitant]
     Active Substance: APIXABAN
  8. METHOTREXATE [Concomitant]
     Active Substance: METHOTREXATE
     Indication: Lymphoma
     Dosage: IV METHOTREXATE 4.96 G/M2 ON DAY 1
  9. METHOTREXATE [Concomitant]
     Active Substance: METHOTREXATE
     Dosage: 4.2 AND 4.88 G/M2
  10. METHOTREXATE [Concomitant]
     Active Substance: METHOTREXATE
     Dosage: 4.2 AND 4.88 G/M2
  11. METHOTREXATE [Concomitant]
     Active Substance: METHOTREXATE
     Dosage: HIGH-DOSE METHOTREXATE
  12. SODIUM BICARBONATE [Concomitant]
     Active Substance: SODIUM BICARBONATE
     Indication: Fluid replacement
     Dosage: SODIUM BICARBONATE IN 5% DEXTROSE IN WATER/BICARBONATE-CONTAINING INTRAVENOUS FLUIDS TOTALING 2.5-5
  13. SODIUM BICARBONATE [Concomitant]
     Active Substance: SODIUM BICARBONATE
     Dosage: SODIUM BICARBONATE IN 5% DEXTROSE IN WATER/BICARBONATE-CONTAINING INTRAVENOUS FLUIDS TOTALING 2.5-5

REACTIONS (2)
  - Drug hypersensitivity [Unknown]
  - Urinary tract infection [Recovered/Resolved]
